FAERS Safety Report 10044261 (Version 2)
Quarter: 2014Q1

REPORT INFORMATION
  Report Type: Spontaneous
  Country: US (occurrence: US)
  Receive Date: 20140328
  Receipt Date: 20140328
  Transmission Date: 20141002
  Serious: Yes (Hospitalization, Other)
  Sender: FDA-Public Use
  Company Number: US-ROCHE-1365348

PATIENT
  Age: 35 Year
  Sex: Male

DRUGS (2)
  1. ZELBORAF [Suspect]
     Indication: MALIGNANT MELANOMA
     Dosage: 4X240MG
     Route: 048
     Dates: start: 20140219, end: 20140306
  2. ZELBORAF [Suspect]
     Dosage: 3 TABLETS IN AM AND 4 TABLETS IN PM
     Route: 048
     Dates: start: 20140309

REACTIONS (6)
  - Stevens-Johnson syndrome [Recovered/Resolved]
  - Rash [Not Recovered/Not Resolved]
  - Tachycardia [Recovered/Resolved]
  - Skin papilloma [Unknown]
  - Arthralgia [Unknown]
  - Chest pain [Unknown]
